FAERS Safety Report 9350208 (Version 1)
Quarter: 2013Q2

REPORT INFORMATION
  Report Type: Spontaneous
  Country: CA (occurrence: CA)
  Receive Date: 20130617
  Receipt Date: 20130617
  Transmission Date: 20140414
  Serious: Yes (Other)
  Sender: FDA-Public Use
  Company Number: CA-AMGEN-CANSP2013041798

PATIENT
  Age: 46 Year
  Sex: Female

DRUGS (2)
  1. ENBREL [Suspect]
     Indication: RHEUMATOID ARTHRITIS
     Dosage: 50 MG, QWK
     Route: 065
     Dates: start: 20130515
  2. LEVOTHYROXIN [Concomitant]
     Dosage: UNK

REACTIONS (4)
  - Diverticulitis [Not Recovered/Not Resolved]
  - Haemorrhagic diathesis [Unknown]
  - Cystitis [Not Recovered/Not Resolved]
  - Injection site bruising [Not Recovered/Not Resolved]
